FAERS Safety Report 10407977 (Version 1)
Quarter: 2014Q3

REPORT INFORMATION
  Report Type: Spontaneous
  Country: MA (occurrence: MA)
  Receive Date: 20140825
  Receipt Date: 20140825
  Transmission Date: 20150326
  Serious: Yes (Hospitalization)
  Sender: FDA-Public Use
  Company Number: MA-ABBVIE-14P-110-1275885-00

PATIENT
  Age: 28 Year
  Sex: Male

DRUGS (3)
  1. VALPROATE SODIUM. [Suspect]
     Active Substance: VALPROATE SODIUM
     Indication: BIPOLAR DISORDER
  2. OLANZAPINE. [Interacting]
     Active Substance: OLANZAPINE
     Indication: BIPOLAR DISORDER
  3. VALPROATE SODIUM. [Interacting]
     Active Substance: VALPROATE SODIUM

REACTIONS (11)
  - Drug interaction [Recovering/Resolving]
  - Altered state of consciousness [Unknown]
  - Blood pressure decreased [Unknown]
  - Hyperhidrosis [Unknown]
  - Neuroleptic malignant syndrome [Recovering/Resolving]
  - Resting tremor [Unknown]
  - Heart rate increased [Unknown]
  - Body temperature increased [Unknown]
  - Musculoskeletal stiffness [Unknown]
  - Dysphagia [Unknown]
  - Blood creatine phosphokinase increased [Unknown]
